FAERS Safety Report 13935049 (Version 1)
Quarter: 2017Q3

REPORT INFORMATION
  Report Type: Report from Study
  Country: None (occurrence: US)
  Receive Date: 20170905
  Receipt Date: 20170905
  Transmission Date: 20171127
  Serious: Yes (Other)
  Sender: FDA-Public Use
  Company Number: US-ABBVIE-17K-163-2001481-00

PATIENT
  Age: 70 Year
  Sex: Female

DRUGS (1)
  1. HUMIRA [Suspect]
     Active Substance: ADALIMUMAB
     Indication: RHEUMATOID ARTHRITIS
     Route: 058

REACTIONS (5)
  - Road traffic accident [Unknown]
  - Rash [Unknown]
  - Aortic stenosis [Unknown]
  - Spinal cord compression [Unknown]
  - Rib fracture [Unknown]

NARRATIVE: CASE EVENT DATE: 201705
